FAERS Safety Report 5982231-2 (Version None)
Quarter: 2008Q4

REPORT INFORMATION
  Report Type: 
  Country: None (occurrence: None)
  Receive Date: 20081208
  Receipt Date: 20081201
  Transmission Date: 20090506
  Serious: Yes (Hospitalization)
  Sender: FDA-Public Use
  Company Number: US-JNJFOC-20081200677

PATIENT
  Sex: Female
  Weight: 97.52 kg

DRUGS (20)
  1. FENTANYL TRANSDERMAL SYSTEM [Suspect]
     Indication: ARTHRALGIA
     Route: 062
  2. FENTANYL TRANSDERMAL SYSTEM [Suspect]
     Indication: ARTHRALGIA
     Route: 062
  3. COUMADIN [Suspect]
     Indication: ANTICOAGULANT THERAPY
     Route: 048
  4. AZMACORT [Concomitant]
     Indication: ASTHMA
     Dosage: INHALATION AS NEEDED
     Route: 055
  5. LASIX [Concomitant]
     Indication: FLUID REPLACEMENT
     Route: 048
  6. MAG OXIDE [Concomitant]
     Route: 048
  7. LISINOPRIL [Concomitant]
     Route: 048
  8. ARICEPT [Concomitant]
     Indication: DEMENTIA ALZHEIMER'S TYPE
     Route: 048
  9. ALLOPURINOL [Concomitant]
     Indication: GOUT
     Route: 048
  10. ZECOR [Concomitant]
     Route: 048
  11. COREG [Concomitant]
     Route: 048
  12. GLYBURIDE [Concomitant]
     Indication: DIABETES MELLITUS
     Route: 048
  13. FOLIC ACID [Concomitant]
     Route: 048
  14. PROTONIX [Concomitant]
     Indication: ANTACID THERAPY
     Route: 048
  15. CYMBALTA [Concomitant]
     Indication: ANTIDEPRESSANT THERAPY
     Route: 048
  16. KLOR-CON [Concomitant]
     Indication: BLOOD POTASSIUM
     Route: 048
  17. COLACE [Concomitant]
     Indication: ABNORMAL FAECES
     Route: 048
  18. NEURONTIN [Concomitant]
     Indication: PAIN
     Route: 048
  19. BUSPAR [Concomitant]
     Indication: ANTIDEPRESSANT THERAPY
     Route: 048
  20. LORTAB [Concomitant]
     Indication: PAIN
     Dosage: DOSE: 10-500 MG
     Route: 048

REACTIONS (3)
  - EPISTAXIS [None]
  - HAEMORRHAGE [None]
  - WRONG TECHNIQUE IN DRUG USAGE PROCESS [None]
